FAERS Safety Report 6463662-3 (Version None)
Quarter: 2009Q4

REPORT INFORMATION
  Report Type: 
  Country: None (occurrence: None)
  Receive Date: 20091201
  Receipt Date: 20091123
  Transmission Date: 20100525
  Serious: Yes (Hospitalization)
  Sender: FDA-Public Use
  Company Number: PHHO2009RU14658

PATIENT
  Sex: Male
  Weight: 98 kg

DRUGS (5)
  1. BLINDED ACZ885 ACZ+ [Suspect]
     Indication: GOUT
     Dosage: DOUBLE BLIND
     Route: 058
     Dates: start: 20090702
  2. BLINDED COLCHICINE COMP-COL+ [Suspect]
     Indication: GOUT
     Dosage: DOUBLE BLIND
     Route: 058
     Dates: start: 20090702
  3. BLINDED NO TREATMENT RECEIVED NOMED [Suspect]
     Indication: GOUT
     Dosage: DOUBLE BLIND
     Route: 058
     Dates: start: 20090702
  4. ALLOPURINOL [Concomitant]
     Dosage: 300 MG DAILY
     Route: 048
  5. LOGIMAX [Concomitant]
     Indication: HYPERTENSION
     Dosage: UNK

REACTIONS (2)
  - EAR INFECTION [None]
  - PNEUMONIA [None]
